FAERS Safety Report 12770900 (Version 1)
Quarter: 2016Q3

REPORT INFORMATION
  Report Type: Spontaneous
  Country: US (occurrence: US)
  Receive Date: 20160922
  Receipt Date: 20160922
  Transmission Date: 20161109
  Serious: No
  Sender: FDA-Public Use
  Company Number: US-TELIGENT, INC-IGIL20160270

PATIENT
  Age: 51 Year
  Sex: Female
  Weight: 68 kg

DRUGS (2)
  1. NAPROXEN. [Suspect]
     Active Substance: NAPROXEN
     Indication: PAIN
     Route: 065
  2. ZANTAC [Suspect]
     Active Substance: RANITIDINE HYDROCHLORIDE
     Indication: PROPHYLAXIS
     Route: 065
     Dates: start: 20150810

REACTIONS (2)
  - Rash erythematous [Unknown]
  - Rash generalised [Unknown]

NARRATIVE: CASE EVENT DATE: 201508
